FAERS Safety Report 5386482-X (Version None)
Quarter: 2007Q3

REPORT INFORMATION
  Report Type: 
  Country: None (occurrence: None)
  Receive Date: 20070713
  Receipt Date: 20070703
  Transmission Date: 20080115
  Serious: Yes (Other)
  Sender: FDA-Public Use
  Company Number: BR-JNJFOC-20070701504

PATIENT
  Age: 57 Year
  Sex: Female
  Weight: 74 kg

DRUGS (2)
  1. ACETAMINOPHEN W/ CODEINE [Suspect]
     Indication: BURSITIS
     Dosage: CODEINE 30MG/ ACETAMINOPHEN 500MG
     Route: 048
  2. MODURETIC 5-50 [Concomitant]
     Indication: HYPERTENSION
     Route: 048

REACTIONS (5)
  - DIZZINESS [None]
  - INCORRECT DOSE ADMINISTERED [None]
  - MALAISE [None]
  - NAUSEA [None]
  - VOMITING [None]
